FAERS Safety Report 4863717-0 (Version None)
Quarter: 2005Q4

REPORT INFORMATION
  Report Type: 
  Country: None (occurrence: None)
  Receive Date: 20051222
  Receipt Date: 20050711
  Transmission Date: 20060501
  Serious: No
  Sender: FDA-Public Use
  Company Number: US-GLAXOSMITHKLINE-A0565763A

PATIENT
  Age: 82 Year
  Sex: Female
  Weight: 59.1 kg

DRUGS (5)
  1. FLONASE [Suspect]
     Indication: DRUG USE FOR UNKNOWN INDICATION
     Dosage: 2SPR IN THE MORNING
     Route: 045
  2. LACTULOSE [Concomitant]
     Indication: CONSTIPATION
     Dosage: 10OZ PER DAY
     Route: 048
  3. ENALAPRIL [Concomitant]
     Indication: BLOOD PRESSURE
     Dosage: 1TAB PER DAY
     Route: 048
  4. FUROSEMIDE [Concomitant]
     Indication: BLOOD PRESSURE
     Dosage: 1TAB PER DAY
     Route: 048
  5. TOPROL-XL [Concomitant]
     Indication: BLOOD PRESSURE
     Dosage: 1TAB PER DAY
     Route: 048

REACTIONS (1)
  - EPISTAXIS [None]
